FAERS Safety Report 8231021-9 (Version None)
Quarter: 2012Q1

REPORT INFORMATION
  Report Type: 
  Country: None (occurrence: None)
  Receive Date: 20120323
  Receipt Date: 20120319
  Transmission Date: 20120608
  Serious: Yes (Hospitalization, Other)
  Sender: FDA-Public Use
  Company Number: US-PFIZER INC-2012072112

PATIENT
  Sex: Male
  Weight: 68.027 kg

DRUGS (1)
  1. LYRICA [Suspect]
     Indication: LIMB DEFORMITY
     Dosage: 100 MG, 2X/DAY
     Route: 048
     Dates: start: 20100101

REACTIONS (8)
  - PAIN IN EXTREMITY [None]
  - ASTHMA [None]
  - OXYGEN SATURATION DECREASED [None]
  - ARTHROPATHY [None]
  - NEURALGIA [None]
  - DYSKINESIA [None]
  - PAIN [None]
  - INTERVERTEBRAL DISC DISORDER [None]
